FAERS Safety Report 12188680 (Version 1)
Quarter: 2016Q1

REPORT INFORMATION
  Report Type: Spontaneous
  Country: FR (occurrence: FR)
  Receive Date: 20160317
  Receipt Date: 20160317
  Transmission Date: 20160526
  Serious: Yes (Life-Threatening, Hospitalization, Disabling)
  Sender: FDA-Public Use
  Company Number: FR-WATSON-2016-05879

PATIENT
  Sex: Male

DRUGS (3)
  1. MYCOPHENOLATE MOFETIL (UNKNOWN) [Suspect]
     Active Substance: MYCOPHENOLATE MOFETIL
     Indication: HENOCH-SCHONLEIN PURPURA NEPHRITIS
     Dosage: UNK
     Route: 065
  2. POVIDONE IOD [Concomitant]
     Indication: ANTIBIOTIC PROPHYLAXIS
     Dosage: UNK
     Route: 061
  3. DEXAMETHASONE (UNKNOWN) [Suspect]
     Active Substance: DEXAMETHASONE
     Indication: DIABETIC RETINAL OEDEMA
     Dosage: UNK
     Route: 031

REACTIONS (2)
  - Blindness [Not Recovered/Not Resolved]
  - Necrotising fasciitis [Recovered/Resolved]
